FAERS Safety Report 7803398-7 (Version None)
Quarter: 2011Q4

REPORT INFORMATION
  Report Type: 
  Country: None (occurrence: None)
  Receive Date: 20111007
  Receipt Date: 20111005
  Transmission Date: 20120403
  Serious: Yes (Death, Other)
  Sender: FDA-Public Use
  Company Number: CU-BAYER-2011-080250

PATIENT
  Age: 54 Year
  Sex: Female
  Weight: 80 kg

DRUGS (6)
  1. IBUPROFEN [Concomitant]
     Dosage: UNK
     Dates: end: 20110831
  2. MEPROBAMATE [Concomitant]
     Indication: SLEEP DISORDER
     Dosage: UNK
     Dates: end: 20110831
  3. TIMOLOL MALEATE [Concomitant]
     Indication: GLAUCOMA
     Dosage: UNK
     Dates: end: 20110831
  4. LIDOCAINE [Concomitant]
     Dosage: UNK
     Dates: start: 20110831, end: 20110831
  5. ULTRAVIST 150 [Suspect]
     Indication: SPINAL MYELOGRAM
     Dosage: 10 ML, ONCE
     Route: 037
     Dates: start: 20110831, end: 20110831
  6. DIPYRONE TAB [Concomitant]
     Indication: PAIN
     Dosage: UNK
     Dates: end: 20110831

REACTIONS (11)
  - VOMITING [None]
  - CARDIO-RESPIRATORY ARREST [None]
  - HAEMODYNAMIC INSTABILITY [None]
  - LOSS OF CONSCIOUSNESS [None]
  - NAUSEA [None]
  - DYSKINESIA [None]
  - PARAESTHESIA [None]
  - COMA [None]
  - MYOCLONUS [None]
  - MUSCLE CONTRACTIONS INVOLUNTARY [None]
  - OPISTHOTONUS [None]
